FAERS Safety Report 6310281-5 (Version None)
Quarter: 2009Q3

REPORT INFORMATION
  Report Type: 
  Country: None (occurrence: None)
  Receive Date: 20090814
  Receipt Date: 20090804
  Transmission Date: 20100115
  Serious: Yes (Hospitalization)
  Sender: FDA-Public Use
  Company Number: PHHY2009DE33383

PATIENT
  Sex: Male
  Weight: 78 kg

DRUGS (7)
  1. ALISKIREN ALI+ [Suspect]
     Indication: HYPERTENSION
     Dosage: UNK
     Route: 048
     Dates: start: 20081117
  2. ACE INHIBITOR NOS [Concomitant]
     Indication: HYPERTENSION
  3. ANGIOTENSIN II ANTAGONISTS [Concomitant]
     Indication: HYPERTENSION
     Dosage: UNK
     Dates: start: 20081117
  4. BETA BLOCKING AGENTS [Concomitant]
     Indication: HYPERTENSION
  5. CALCIUM CHANNEL BLOCKERS [Concomitant]
  6. DIURETICS [Concomitant]
  7. ANTIHYPERTENSIVES [Concomitant]

REACTIONS (1)
  - RENAL IMPAIRMENT [None]
